FAERS Safety Report 5130330-X (Version None)
Quarter: 2006Q4

REPORT INFORMATION
  Report Type: 
  Country: None (occurrence: None)
  Receive Date: 20061018
  Receipt Date: 20061018
  Transmission Date: 20070319
  Serious: Yes (Hospitalization)
  Sender: FDA-Public Use
  Company Number: None

PATIENT
  Age: 47 Year
  Sex: Male
  Weight: 84 kg

DRUGS (8)
  1. RISPERIDONE [Suspect]
     Indication: SCHIZOPHRENIA
     Dosage: 3 MG BID PO
     Route: 048
  2. LINEZOLID [Suspect]
     Indication: INFECTION
     Dosage: 600 MG BID PO
     Route: 048
  3. RISPERIDONE [Concomitant]
  4. SIMVASTATIN [Concomitant]
  5. PEPCID [Concomitant]
  6. NICOTINE [Concomitant]
  7. LINEZOLID [Concomitant]
  8. AUGMENTIN '125' [Concomitant]

REACTIONS (7)
  - BLOOD CREATININE INCREASED [None]
  - BLOOD UREA INCREASED [None]
  - DEHYDRATION [None]
  - GRAFT INFECTION [None]
  - HYPERNATRAEMIA [None]
  - NEUROLEPTIC MALIGNANT SYNDROME [None]
  - SMALL INTESTINAL OBSTRUCTION [None]
